FAERS Safety Report 11740611 (Version 2)
Quarter: 2015Q4

REPORT INFORMATION
  Report Type: Spontaneous
  Country: US (occurrence: US)
  Receive Date: 20151110
  Receipt Date: 20151120
  Transmission Date: 20160304
  Serious: No
  Sender: FDA-Public Use
  Company Number: US-ELI_LILLY_AND_COMPANY-US201111001971

PATIENT
  Age: 75 Year
  Sex: Female

DRUGS (3)
  1. FORTEO [Suspect]
     Active Substance: TERIPARATIDE
     Dosage: 20 UG, QD
     Route: 065
  2. FORTEO [Suspect]
     Active Substance: TERIPARATIDE
     Dosage: 20 UG, QD
     Route: 065
  3. FORTEO [Suspect]
     Active Substance: TERIPARATIDE
     Indication: OSTEOPOROSIS
     Dosage: 20 UG, QD
     Route: 065
     Dates: start: 20111017

REACTIONS (9)
  - Musculoskeletal discomfort [Unknown]
  - Cough [Unknown]
  - Back pain [Unknown]
  - Fall [Recovered/Resolved]
  - Injection site bruising [Unknown]
  - Pneumonia [Not Recovered/Not Resolved]
  - Multi-vitamin deficiency [Unknown]
  - Abdominal pain upper [Unknown]
  - Mineral deficiency [Unknown]

NARRATIVE: CASE EVENT DATE: 20111017
